FAERS Safety Report 5105535-4 (Version None)
Quarter: 2006Q3

REPORT INFORMATION
  Report Type: 
  Country: None (occurrence: None)
  Receive Date: 20060915
  Receipt Date: 20060306
  Transmission Date: 20061208
  Serious: Yes (Hospitalization, Other)
  Sender: FDA-Public Use
  Company Number: US-BRISTOL-MYERS SQUIBB COMPANY-13305586

PATIENT
  Age: 56 Year
  Sex: Female

DRUGS (3)
  1. DASATINIB [Suspect]
     Indication: CHRONIC MYELOID LEUKAEMIA
     Dosage: THERAPY STOP DATE: 01MAR06
     Route: 048
     Dates: start: 20060224, end: 20060301
  2. ACYCLOVIR [Concomitant]
     Dates: start: 20060222
  3. CIPRO [Concomitant]
     Dates: start: 20060222, end: 20060305

REACTIONS (4)
  - ARTHRALGIA [None]
  - CHILLS [None]
  - FEBRILE NEUTROPENIA [None]
  - HEADACHE [None]
